FAERS Safety Report 14582902 (Version 3)
Quarter: 2018Q1

REPORT INFORMATION
  Report Type: Spontaneous
  Country: US (occurrence: US)
  Receive Date: 20180228
  Receipt Date: 20180328
  Transmission Date: 20180509
  Serious: Yes (Other)
  Sender: FDA-Public Use
  Company Number: US-GLAXOSMITHKLINE-US2018GSK032624

PATIENT
  Age: 81 Year
  Sex: Female

DRUGS (7)
  1. ANORO ELLIPTA [Suspect]
     Active Substance: UMECLIDINIUM BROMIDE\VILANTEROL TRIFENATATE
     Indication: CHRONIC OBSTRUCTIVE PULMONARY DISEASE
     Dosage: 1 PUFF(S), QD
     Dates: start: 20180223
  2. CEPHALEXIN. [Concomitant]
     Active Substance: CEPHALEXIN
  3. SPIRIVA [Concomitant]
     Active Substance: TIOTROPIUM BROMIDE MONOHYDRATE
  4. ADVAIR DISKUS [Interacting]
     Active Substance: FLUTICASONE PROPIONATE\SALMETEROL XINAFOATE
     Indication: CHRONIC OBSTRUCTIVE PULMONARY DISEASE
     Dosage: 1 PUFF(S), BID
  5. LOSARTAN. [Concomitant]
     Active Substance: LOSARTAN
  6. OMEPRAZOLE. [Concomitant]
     Active Substance: OMEPRAZOLE
  7. ANORO ELLIPTA [Interacting]
     Active Substance: UMECLIDINIUM BROMIDE\VILANTEROL TRIFENATATE
     Dosage: UNK

REACTIONS (4)
  - Drug effect decreased [Recovered/Resolved with Sequelae]
  - Labelled drug-drug interaction medication error [Recovered/Resolved]
  - Lower respiratory tract congestion [Recovered/Resolved with Sequelae]
  - Cellulitis [Recovered/Resolved with Sequelae]

NARRATIVE: CASE EVENT DATE: 2016
